FAERS Safety Report 5822761-7 (Version None)
Quarter: 2008Q3

REPORT INFORMATION
  Report Type: 
  Country: None (occurrence: None)
  Receive Date: 20080718
  Receipt Date: 20080423
  Transmission Date: 20090109
  Serious: Yes (Hospitalization)
  Sender: FDA-Public Use
  Company Number: 2008PV000023

PATIENT
  Age: 66 Year
  Sex: Female

DRUGS (1)
  1. DEPODUR [Suspect]
     Indication: PROCEDURAL PAIN
     Dosage: 7.5 MG;1X;ED
     Route: 008

REACTIONS (1)
  - HYPOTENSION [None]
